FAERS Safety Report 4469347-7 (Version None)
Quarter: 2004Q4

REPORT INFORMATION
  Report Type: 
  Country: None (occurrence: None)
  Receive Date: 20041008
  Receipt Date: 20040127
  Transmission Date: 20050328
  Serious: No
  Sender: FDA-Public Use
  Company Number: US-BRISTOL-MYERS SQUIBB COMPANY-12489399

PATIENT
  Age: 75 Year
  Sex: Female
  Weight: 46 kg

DRUGS (4)
  1. AVAPRO [Suspect]
     Indication: HYPERTENSION
     Route: 048
     Dates: start: 20030930, end: 20040123
  2. NITROGLYCERIN SL [Concomitant]
     Route: 060
  3. CARDIZEM [Concomitant]
  4. PERSANTIN INJ [Concomitant]

REACTIONS (3)
  - ALOPECIA [None]
  - RASH MACULAR [None]
  - RASH PRURITIC [None]
